FAERS Safety Report 19801293 (Version 1)
Quarter: 2021Q3

REPORT INFORMATION
  Report Type: Spontaneous
  Country: US (occurrence: US)
  Receive Date: 20210908
  Receipt Date: 20210908
  Transmission Date: 20211014
  Serious: No
  Sender: FDA-Public Use
  Company Number: US-DRREDDYS-SPO/USA/21/0139745

PATIENT
  Age: 63 Year
  Sex: Female
  Weight: 74.25 kg

DRUGS (1)
  1. OMEPRAZOLE. [Suspect]
     Active Substance: OMEPRAZOLE
     Indication: DYSPEPSIA

REACTIONS (4)
  - Product taste abnormal [Unknown]
  - Nausea [Unknown]
  - Product use issue [Unknown]
  - Retching [Unknown]
